FAERS Safety Report 11531976 (Version 1)
Quarter: 2015Q3

REPORT INFORMATION
  Report Type: Spontaneous
  Country: FR (occurrence: FR)
  Receive Date: 20150921
  Receipt Date: 20150921
  Transmission Date: 20151125
  Serious: Yes (Hospitalization)
  Sender: FDA-Public Use
  Company Number: FR-PFIZER INC-2015309605

PATIENT
  Age: 56 Year
  Sex: Female

DRUGS (2)
  1. IMOVANE [Suspect]
     Active Substance: ZOPICLONE
     Dosage: 24 DF, SINGLE
     Route: 048
     Dates: start: 20150722, end: 20150722
  2. XANAX [Suspect]
     Active Substance: ALPRAZOLAM
     Dosage: 40 DF, SINGLE
     Route: 048
     Dates: start: 20150722, end: 20150722

REACTIONS (4)
  - Intentional overdose [Recovered/Resolved]
  - Somnolence [Recovered/Resolved]
  - Mydriasis [Recovered/Resolved]
  - Altered state of consciousness [Recovered/Resolved]

NARRATIVE: CASE EVENT DATE: 20150722
